FAERS Safety Report 20573589 (Version 2)
Quarter: 2022Q1

REPORT INFORMATION
  Report Type: Report from Study
  Country: US (occurrence: US)
  Receive Date: 20220309
  Receipt Date: 20220331
  Transmission Date: 20220423
  Serious: Yes (Other)
  Sender: FDA-Public Use
  Company Number: US-UCBSA-2022012746

PATIENT
  Sex: Female

DRUGS (3)
  1. LACOSAMIDE [Suspect]
     Active Substance: LACOSAMIDE
     Indication: Seizure
     Dosage: 50MG 1 TABLET IN AM AND 2 TABLETS AT PM
  2. LACOSAMIDE [Suspect]
     Active Substance: LACOSAMIDE
     Dosage: 50MG IN THE MORNING AND 250 MG IN THE NIGHTUNK
  3. LEXAPRO [Suspect]
     Active Substance: ESCITALOPRAM OXALATE
     Indication: Product used for unknown indication
     Dosage: UNK

REACTIONS (12)
  - Cervical vertebral fracture [Recovering/Resolving]
  - Loss of consciousness [Recovering/Resolving]
  - Head injury [Recovering/Resolving]
  - Seizure [Recovering/Resolving]
  - Swelling [Recovering/Resolving]
  - Fall [Recovering/Resolving]
  - Polydipsia [Recovering/Resolving]
  - Gingival pain [Recovering/Resolving]
  - Incontinence [Recovering/Resolving]
  - Balance disorder [Recovering/Resolving]
  - Migraine [Recovering/Resolving]
  - Product use issue [Unknown]
